FAERS Safety Report 25574409 (Version 3)
Quarter: 2025Q4

REPORT INFORMATION
  Report Type: Report from Study
  Country: EU (occurrence: EU)
  Receive Date: 20250717
  Receipt Date: 20251117
  Transmission Date: 20260117
  Serious: Yes (Hospitalization)
  Sender: ABBVIE
  Company Number: EU-ABBVIE-6374924

PATIENT
  Age: 84 Year
  Sex: Male

DRUGS (3)
  1. CARBIDOPA\LEVODOPA [Suspect]
     Active Substance: CARBIDOPA\LEVODOPA
     Indication: Parkinson^s disease
     Dosage: MD 3.0ML, CRD, 4.3ML/H, CRN 2.1ML/H, ED 0.8ML
     Route: 050
     Dates: start: 20250716
  2. CARBIDOPA\LEVODOPA [Suspect]
     Active Substance: CARBIDOPA\LEVODOPA
     Dosage: MD 3.0ML, CRD, 4.3ML/H, CRN 2.1ML/H, ED 0.8ML
     Route: 050
     Dates: start: 20250718
  3. FOSCARBIDOPA\FOSLEVODOPA [Suspect]
     Active Substance: FOSCARBIDOPA\FOSLEVODOPA
     Indication: Parkinson^s disease
     Dosage: DOSAGE OF 0.36 ML/H?LAST ADMIN DATE- 2025
     Route: 058
     Dates: start: 20240628

REACTIONS (6)
  - Femoral neck fracture [Unknown]
  - Enteral nutrition [Not Recovered/Not Resolved]
  - Dysphagia [Unknown]
  - Pneumonia [Unknown]
  - Fall [Unknown]
  - Device issue [Unknown]

NARRATIVE: CASE EVENT DATE: 20250101
